FAERS Safety Report 6251391-0 (Version None)
Quarter: 2009Q2

REPORT INFORMATION
  Report Type: 
  Country: None (occurrence: None)
  Receive Date: 20090630
  Receipt Date: 20090622
  Transmission Date: 20091009
  Serious: Yes (Other)
  Sender: FDA-Public Use
  Company Number: D0058100A

PATIENT
  Age: 42 Year
  Sex: Female

DRUGS (3)
  1. REQUIP [Suspect]
     Indication: PARKINSON'S DISEASE
     Dosage: 2MG PER DAY
     Route: 048
     Dates: start: 20080401
  2. PIRIBEDIL [Suspect]
     Dosage: 50MG THREE TIMES PER DAY
     Route: 048
  3. SIFROL [Concomitant]
     Indication: PARKINSON'S DISEASE
     Dosage: .7MG THREE TIMES PER DAY
     Route: 048
     Dates: start: 20070101

REACTIONS (19)
  - CARDIOVASCULAR DISORDER [None]
  - DYSGRAPHIA [None]
  - DYSPNOEA [None]
  - FATIGUE [None]
  - FLUID RETENTION [None]
  - HYPOAESTHESIA [None]
  - MALAISE [None]
  - MOTOR DYSFUNCTION [None]
  - MUSCLE SPASMS [None]
  - MUSCULOSKELETAL DISCOMFORT [None]
  - MUSCULOSKELETAL PAIN [None]
  - MYALGIA [None]
  - NAUSEA [None]
  - NECK PAIN [None]
  - OEDEMA [None]
  - SOMNOLENCE [None]
  - TREMOR [None]
  - WEIGHT DECREASED [None]
  - WEIGHT INCREASED [None]
